FAERS Safety Report 6611969-9 (Version None)
Quarter: 2010Q1

REPORT INFORMATION
  Report Type: 
  Country: None (occurrence: None)
  Receive Date: 20100302
  Receipt Date: 20100302
  Transmission Date: 20100710
  Serious: Yes (Hospitalization)
  Sender: FDA-Public Use
  Company Number: None

PATIENT
  Sex: Female
  Weight: 72.72 kg

DRUGS (3)
  1. CARBOPLATIN [Suspect]
     Dosage: 579 MG
     Dates: end: 20100209
  2. TAXOTERE [Suspect]
     Dosage: 137 MG
     Dates: end: 20100209
  3. TAXOL [Suspect]
     Dosage: 109 MG
     Dates: end: 20100216

REACTIONS (8)
  - ABDOMINAL PAIN LOWER [None]
  - BACTERIAL TEST POSITIVE [None]
  - BLOOD URINE PRESENT [None]
  - KLEBSIELLA INFECTION [None]
  - NITRITE URINE PRESENT [None]
  - PROTEIN URINE PRESENT [None]
  - PYREXIA [None]
  - URINE KETONE BODY PRESENT [None]
